FAERS Safety Report 15104185 (Version 1)
Quarter: 2018Q3

REPORT INFORMATION
  Report Type: Spontaneous
  Country: DZ (occurrence: DZ)
  Receive Date: 20180703
  Receipt Date: 20180703
  Transmission Date: 20181010
  Serious: Yes (Other)
  Sender: FDA-Public Use
  Company Number: DZ-MYLANLABS-2018M1048824

PATIENT
  Sex: Female

DRUGS (1)
  1. CANMAB [Suspect]
     Active Substance: TRASTUZUMAB
     Indication: BREAST CANCER
     Dosage: PERFUSION
     Route: 042

REACTIONS (1)
  - Cerebellar ataxia [Unknown]
